FAERS Safety Report 9964082 (Version 1)
Quarter: 2014Q1

REPORT INFORMATION
  Report Type: Spontaneous
  Country: DK (occurrence: DK)
  Receive Date: 20140305
  Receipt Date: 20140305
  Transmission Date: 20141002
  Serious: Yes (Other)
  Sender: FDA-Public Use
  Company Number: DK-GLAXOSMITHKLINE-B0974039A

PATIENT
  Sex: Female

DRUGS (11)
  1. LAPATINIB [Suspect]
     Indication: BREAST CANCER
     Route: 065
  2. ERIBULIN [Suspect]
     Indication: BREAST CANCER
     Route: 065
  3. LETROZOLE [Suspect]
     Indication: BREAST CANCER
     Route: 065
  4. GEMCITABINE [Suspect]
     Indication: BREAST CANCER
     Route: 065
  5. HERCEPTIN [Suspect]
     Indication: BREAST CANCER
     Route: 065
  6. TAMOXIFENE [Suspect]
     Indication: BREAST CANCER
     Route: 065
  7. TAXOL [Suspect]
     Indication: BREAST CANCER
     Route: 065
  8. TAXOTERE [Suspect]
     Indication: BREAST CANCER
     Route: 065
  9. VINORELBINE [Suspect]
     Indication: BREAST CANCER
     Route: 065
  10. XELODA [Suspect]
     Indication: BREAST CANCER
     Route: 065
  11. ZOMETA [Suspect]
     Indication: BREAST CANCER
     Route: 065

REACTIONS (6)
  - Metastases to bone [Unknown]
  - Pleural effusion [Unknown]
  - Lung infiltration [Unknown]
  - Disease progression [Unknown]
  - Metastases to liver [Unknown]
  - Nervous system disorder [Unknown]
